FAERS Safety Report 20236951 (Version 2)
Quarter: 2022Q1

REPORT INFORMATION
  Report Type: Spontaneous
  Country: US (occurrence: US)
  Receive Date: 20211228
  Receipt Date: 20220111
  Transmission Date: 20220423
  Serious: Yes (Other)
  Sender: FDA-Public Use
  Company Number: US-AMGEN-USASP2021202779

PATIENT
  Age: 77 Year
  Sex: Female
  Weight: 64.853 kg

DRUGS (2)
  1. PROLIA [Suspect]
     Active Substance: DENOSUMAB
     Indication: Osteoporosis postmenopausal
     Dosage: 60 MILLIGRAM, Q6MO
     Route: 058
     Dates: start: 20210408
  2. TAMOXIFEN [Concomitant]
     Active Substance: TAMOXIFEN
     Dosage: UNK
     Route: 065

REACTIONS (3)
  - Breast cancer [Unknown]
  - Cardiac pacemaker insertion [Unknown]
  - Parathyroidectomy [Unknown]

NARRATIVE: CASE EVENT DATE: 20211001
